FAERS Safety Report 11072832 (Version 1)
Quarter: 2015Q2

REPORT INFORMATION
  Report Type: Spontaneous
  Country: DE (occurrence: DE)
  Receive Date: 20150428
  Receipt Date: 20150428
  Transmission Date: 20150821
  Serious: Yes (Hospitalization, Disabling, Other)
  Sender: FDA-Public Use
  Company Number: DE-PFIZER INC-2015138495

PATIENT
  Age: 31 Year
  Sex: Female
  Weight: 70 kg

DRUGS (1)
  1. CLINDAMYCIN [Suspect]
     Active Substance: CLINDAMYCIN\CLINDAMYCIN PHOSPHATE
     Indication: DENTAL CARIES
     Dosage: 600 MG, 3X/DAY
     Dates: start: 20150315, end: 20150321

REACTIONS (3)
  - Weight decreased [Unknown]
  - Diarrhoea [Not Recovered/Not Resolved]
  - Pseudomembranous colitis [Not Recovered/Not Resolved]

NARRATIVE: CASE EVENT DATE: 20150320
